FAERS Safety Report 7728227-1 (Version None)
Quarter: 2011Q3

REPORT INFORMATION
  Report Type: 
  Country: None (occurrence: None)
  Receive Date: 20110905
  Receipt Date: 20110825
  Transmission Date: 20111222
  Serious: Yes (Hospitalization, Other)
  Sender: FDA-Public Use
  Company Number: PHEH2011US01910

PATIENT
  Sex: Female
  Weight: 93.2 kg

DRUGS (19)
  1. EXEMESTANE [Concomitant]
  2. SOLU-MEDROL [Concomitant]
     Dosage: UNK UKN, UNK
     Route: 065
  3. BENADRYL [Concomitant]
     Dosage: UNK UKN, UNK
     Route: 065
  4. NEURONTIN [Concomitant]
  5. TRAZODONE HCL [Concomitant]
  6. BIOTIN [Concomitant]
  7. VITAMIN B-12 [Concomitant]
  8. VITAMIN D [Concomitant]
  9. ALBUTEROL SULFATE AUTOHALER [Concomitant]
     Dosage: UNK UKN, UNK
     Route: 065
  10. ZOMETA [Suspect]
     Indication: OSTEOPOROSIS
     Dosage: 4 MG, EVERY 6 MONTHS
  11. DOCUSATE SODIUM [Concomitant]
  12. ATIVAN [Concomitant]
  13. EPINEPHRINE [Concomitant]
     Dosage: UNK UKN, UNK
     Route: 065
  14. OXYGEN [Concomitant]
     Dosage: UNK UKN, UNK
     Route: 065
  15. PROZAC [Concomitant]
  16. ACETAMINOPHEN AND HYDROCODONE BITARTRATE [Concomitant]
  17. PRILOSEC [Concomitant]
  18. SEROQUEL [Concomitant]
  19. CALCIUM CARBONATE [Concomitant]

REACTIONS (11)
  - FALL [None]
  - DYSPNOEA [None]
  - COUGH [None]
  - ANXIETY [None]
  - CHEST DISCOMFORT [None]
  - WHEEZING [None]
  - BONE PAIN [None]
  - MYALGIA [None]
  - CHEST PAIN [None]
  - LOSS OF CONSCIOUSNESS [None]
  - ARTHRALGIA [None]
